FAERS Safety Report 7476789-4 (Version None)
Quarter: 2011Q2

REPORT INFORMATION
  Report Type: 
  Country: None (occurrence: None)
  Receive Date: 20110512
  Receipt Date: 20110504
  Transmission Date: 20111010
  Serious: Yes (Hospitalization)
  Sender: FDA-Public Use
  Company Number: US-GILEAD-2011-0035638

PATIENT
  Sex: Female

DRUGS (4)
  1. ADCIRCA [Concomitant]
  2. REMODULIN [Concomitant]
  3. LETAIRIS [Suspect]
     Indication: HIV INFECTION
  4. LETAIRIS [Suspect]
     Indication: PULMONARY HYPERTENSION
     Route: 048
     Dates: start: 20100419

REACTIONS (7)
  - MALNUTRITION [None]
  - PERICARDITIS [None]
  - PLEURAL EFFUSION [None]
  - RIGHT VENTRICULAR FAILURE [None]
  - HIV INFECTION [None]
  - CLOSTRIDIUM DIFFICILE COLITIS [None]
  - PULMONARY HYPERTENSION [None]
